FAERS Safety Report 5523575-8 (Version None)
Quarter: 2007Q4

REPORT INFORMATION
  Report Type: 
  Country: None (occurrence: None)
  Receive Date: 20071121
  Receipt Date: 20071112
  Transmission Date: 20080405
  Serious: Yes (Other)
  Sender: FDA-Public Use
  Company Number: FR-ROCHE-531246

PATIENT
  Age: 40 Year
  Sex: Female

DRUGS (6)
  1. XELODA [Suspect]
     Route: 065
  2. VITAMIN B [Concomitant]
  3. DEPAKENE [Concomitant]
  4. SINTROM [Concomitant]
  5. GARDENAL [Concomitant]
  6. INEXIUM [Concomitant]

REACTIONS (2)
  - HAEMOLYTIC ANAEMIA [None]
  - PANCYTOPENIA [None]
